FAERS Safety Report 11770814 (Version 1)
Quarter: 2015Q4

REPORT INFORMATION
  Report Type: Spontaneous
  Country: BR (occurrence: BR)
  Receive Date: 20151123
  Receipt Date: 20151123
  Transmission Date: 20160304
  Serious: Yes (Other)
  Sender: FDA-Public Use
  Company Number: PHHY2015BR153179

PATIENT
  Sex: Female
  Weight: 80 kg

DRUGS (1)
  1. TEGRETOL [Suspect]
     Active Substance: CARBAMAZEPINE
     Indication: NEURALGIA
     Dosage: 3 DF (THREE TABLETS OF TEGRETOL CR 200 MG 60 CE), QD
     Route: 048

REACTIONS (3)
  - Paraesthesia [Not Recovered/Not Resolved]
  - Off label use [Unknown]
  - Trigeminal nerve disorder [Not Recovered/Not Resolved]
